FAERS Safety Report 9146759 (Version 1)
Quarter: 2013Q1

REPORT INFORMATION
  Report Type: Spontaneous
  Country: US (occurrence: None)
  Receive Date: 20130228
  Receipt Date: 20130228
  Transmission Date: 20140127
  Serious: Yes (Life-Threatening, Disabling, Other)
  Sender: FDA-Public Use
  Company Number: None

PATIENT
  Age: 67 Year
  Sex: Female
  Weight: 104.33 kg

DRUGS (8)
  1. ULORIC [Suspect]
     Indication: GOUT
     Route: 048
     Dates: start: 201211, end: 20130109
  2. NIFEDIPINE ER [Concomitant]
  3. PREDNISONE [Concomitant]
  4. LEVOTHYROXIN [Concomitant]
  5. DOXAZOSIN [Concomitant]
  6. CLONIDINE [Concomitant]
  7. LOW DOSE ASPIRIN [Concomitant]
  8. LATANOPROST [Concomitant]

REACTIONS (7)
  - Gout [None]
  - Local swelling [None]
  - Local swelling [None]
  - Muscular weakness [None]
  - Headache [None]
  - Cardiac disorder [None]
  - Muscular weakness [None]
